FAERS Safety Report 11108556 (Version 1)
Quarter: 2015Q2

REPORT INFORMATION
  Report Type: Report from Study
  Country: GB (occurrence: GB)
  Receive Date: 20150513
  Receipt Date: 20150513
  Transmission Date: 20150821
  Serious: Yes (Hospitalization)
  Sender: FDA-Public Use
  Company Number: GB-ROCHE-1017966

PATIENT
  Age: 72 Year
  Sex: Male
  Weight: 90.1 kg

DRUGS (11)
  1. CAPECITABINE. [Suspect]
     Active Substance: CAPECITABINE
     Indication: ADENOCARCINOMA
     Dosage: LAST DOSE PRIOR TO SAE: 21/SEP/2011, CYCLE 3
     Route: 048
     Dates: start: 20110721
  2. PERINDOPRIL [Concomitant]
     Active Substance: PERINDOPRIL
     Route: 048
     Dates: start: 201104
  3. CISPLATIN. [Suspect]
     Active Substance: CISPLATIN
     Indication: ADENOCARCINOMA
     Dosage: LAST DOSE PRIOR TO SAE: 124 MG
     Route: 042
     Dates: start: 20110721
  4. EPIRUBICIN [Suspect]
     Active Substance: EPIRUBICIN
     Indication: ADENOCARCINOMA
     Dosage: AST DOSE PRIOR TO SAE: 01/SEP/2011, CYCLE 3
     Route: 042
     Dates: start: 20110721
  5. SIMVASTATIN. [Concomitant]
     Active Substance: SIMVASTATIN
     Route: 048
     Dates: start: 201104
  6. BISOPROLOL [Concomitant]
     Active Substance: BISOPROLOL
     Route: 048
     Dates: start: 201104
  7. EZETIMIBE. [Concomitant]
     Active Substance: EZETIMIBE
     Route: 048
     Dates: start: 201104
  8. BEVACIZUMAB [Suspect]
     Active Substance: BEVACIZUMAB
     Indication: ADENOCARCINOMA
     Dosage: LAST DOSE PRIOR TO SAE: 01/SEP/2011, CYCLE 3
     Route: 042
     Dates: start: 20110721
  9. OMEPRAZOLE. [Concomitant]
     Active Substance: OMEPRAZOLE
     Route: 065
     Dates: start: 201104
  10. INDAPAMIDE HEMIHYDRATE [Concomitant]
     Route: 048
     Dates: start: 201104
  11. ZOPIDONE [Concomitant]
     Route: 048
     Dates: start: 20111003

REACTIONS (1)
  - Pulmonary embolism [Not Recovered/Not Resolved]

NARRATIVE: CASE EVENT DATE: 20111003
